FAERS Safety Report 4758993-9 (Version None)
Quarter: 2005Q3

REPORT INFORMATION
  Report Type: 
  Country: None (occurrence: None)
  Receive Date: 20050826
  Receipt Date: 20050816
  Transmission Date: 20060218
  Serious: Yes (Hospitalization)
  Sender: FDA-Public Use
  Company Number: 2005116379

PATIENT
  Sex: Male
  Weight: 117.9352 kg

DRUGS (18)
  1. DILANTIN [Suspect]
     Indication: CONVULSION PROPHYLAXIS
     Dosage: 300 MG (100 MG, 3 IN 1 D)
     Dates: end: 20040101
  2. ZOLOFT [Suspect]
     Indication: ANXIETY
     Dosage: 100 MG (100 MG, 1 IN 1 D)
     Dates: start: 20030101, end: 20040101
  3. NEURONTIN [Suspect]
     Indication: DIABETIC NEUROPATHY
     Dosage: 2600 MG (3 IN 1 D)
  4. KLONOPIN [Suspect]
     Indication: ANXIETY
     Dates: end: 20040101
  5. XANAX [Concomitant]
  6. MINOCYCLINE HCL [Concomitant]
  7. POTASSIUM CHLORIDE [Concomitant]
  8. LEVOXYL [Concomitant]
  9. LASIX [Concomitant]
  10. NOVOLOG [Concomitant]
  11. LISINOPRIL [Concomitant]
  12. BENTYL [Concomitant]
  13. ACTONEL [Concomitant]
  14. ALLEGRA [Concomitant]
  15. PROTONIX [Concomitant]
  16. NEXIUM [Concomitant]
  17. VYTORIN [Concomitant]
  18. METOLAZONE [Concomitant]

REACTIONS (5)
  - ANGER [None]
  - CRYING [None]
  - IRRITABILITY [None]
  - MENTAL DISORDER [None]
  - SCREAMING [None]
